FAERS Safety Report 15328450 (Version 3)
Quarter: 2018Q4

REPORT INFORMATION
  Report Type: Report from Study
  Country: None (occurrence: US)
  Receive Date: 20180829
  Receipt Date: 20181009
  Transmission Date: 20190204
  Serious: Yes (Hospitalization, Other)
  Sender: FDA-Public Use
  Company Number: US-ABBVIE-18K-163-2466542-00

PATIENT
  Age: 40 Year
  Sex: Male
  Weight: 64.92 kg

DRUGS (3)
  1. HUMIRA [Suspect]
     Active Substance: ADALIMUMAB
     Indication: COLITIS ULCERATIVE
     Route: 058
     Dates: start: 2016, end: 201805
  2. HUMIRA [Suspect]
     Active Substance: ADALIMUMAB
     Indication: CROHN^S DISEASE
     Route: 058
     Dates: start: 201805, end: 201808
  3. NALTREXONE [Concomitant]
     Active Substance: NALTREXONE
     Indication: COLITIS ULCERATIVE
     Dosage: LOW DOSE

REACTIONS (5)
  - Gastrointestinal disorder [Recovered/Resolved]
  - Fistula [Recovered/Resolved]
  - Abdominal pain [Recovering/Resolving]
  - Pneumoperitoneum [Recovered/Resolved]
  - Large intestine perforation [Recovered/Resolved]

NARRATIVE: CASE EVENT DATE: 20180823
